FAERS Safety Report 9185207 (Version 1)
Quarter: 2013Q1

REPORT INFORMATION
  Report Type: Spontaneous
  Country: US (occurrence: US)
  Receive Date: 20130325
  Receipt Date: 20130325
  Transmission Date: 20140127
  Serious: No
  Sender: FDA-Public Use
  Company Number: US-ASTRAZENECA-2012SE21778

PATIENT
  Age: 10 Year
  Sex: Male

DRUGS (1)
  1. NEXIUM [Suspect]
     Dosage: 20 OR 40 MG IV PUSH, UNKNOWN
     Route: 042

REACTIONS (1)
  - Injection site extravasation [Unknown]
